FAERS Safety Report 9025985 (Version 1)
Quarter: 2013Q1

REPORT INFORMATION
  Report Type: Spontaneous
  Country: BR (occurrence: None)
  Receive Date: 20130104
  Receipt Date: 20130104
  Transmission Date: 20140127
  Serious: Yes (Hospitalization)
  Sender: FDA-Public Use
  Company Number: ALLO20120022

PATIENT
  Age: 64 Year
  Sex: Male

DRUGS (1)
  1. ALLOPURINOL TABLETS, USP [Suspect]
     Indication: PRODUCT USED FOR UNKNOWN INDICATION
     Route: 048
     Dates: start: 2012, end: 2012

REACTIONS (4)
  - Drug reaction with eosinophilia and systemic symptoms [None]
  - Lymphadenopathy [None]
  - Liver disorder [None]
  - Renal disorder [None]
